FAERS Safety Report 20503173 (Version 1)
Quarter: 2022Q1

REPORT INFORMATION
  Report Type: Spontaneous
  Country: US (occurrence: None)
  Receive Date: 20220222
  Receipt Date: 20220222
  Transmission Date: 20220423
  Serious: No
  Sender: FDA-Public Use
  Company Number: None

PATIENT
  Age: 60 Year
  Sex: Female

DRUGS (2)
  1. UPTRAVI [Suspect]
     Active Substance: SELEXIPAG
     Dosage: TWICE A DAY?
  2. OPSUMIT [Concomitant]
     Active Substance: MACITENTAN

REACTIONS (4)
  - Pain in extremity [None]
  - Headache [None]
  - Pain [None]
  - Pain in jaw [None]

NARRATIVE: CASE EVENT DATE: 20220201
